FAERS Safety Report 6252266-3 (Version None)
Quarter: 2009Q2

REPORT INFORMATION
  Report Type: 
  Country: None (occurrence: None)
  Receive Date: 20090630
  Receipt Date: 20060303
  Transmission Date: 20091009
  Serious: Yes (Hospitalization)
  Sender: FDA-Public Use
  Company Number: US-ROCHE-639214

PATIENT
  Sex: Male

DRUGS (9)
  1. ENFUVIRTIDE [Suspect]
     Route: 065
     Dates: start: 20031031, end: 20080215
  2. KALETRA [Concomitant]
     Dates: start: 20031031, end: 20080215
  3. VIRAMUNE [Concomitant]
     Dates: start: 20031031, end: 20061120
  4. ZERIT [Concomitant]
     Dates: start: 20031031, end: 20080215
  5. DIFLUCAN [Concomitant]
     Dosage: FREQUENCY: QD
     Dates: start: 20041008, end: 20080215
  6. ZITHROMAX [Concomitant]
     Dates: start: 20050228, end: 20080215
  7. SPECTAZOLE [Concomitant]
     Dates: start: 20051215, end: 20060115
  8. ZEASORB AF [Concomitant]
     Dates: start: 20051215, end: 20060115
  9. LEVAQUIN [Concomitant]
     Dosage: FREQUENCY: QD
     Dates: start: 20060118, end: 20060128

REACTIONS (1)
  - FAILURE TO THRIVE [None]
